FAERS Safety Report 7738820-8 (Version None)
Quarter: 2011Q3

REPORT INFORMATION
  Report Type: 
  Country: None (occurrence: None)
  Receive Date: 20110909
  Receipt Date: 20110901
  Transmission Date: 20111222
  Serious: Yes (Other)
  Sender: FDA-Public Use
  Company Number: GB-AMGEN-GBRSP2011045415

PATIENT
  Age: 46 Year
  Sex: Female
  Weight: 103 kg

DRUGS (3)
  1. CELEBREX [Concomitant]
     Indication: RHEUMATOID ARTHRITIS
     Dosage: 200 MG, UNK
     Route: 048
  2. METFORMIN [Concomitant]
     Dosage: 1 G, UNK
  3. ENBREL [Suspect]
     Indication: RHEUMATOID ARTHRITIS
     Dosage: 25 MG, 2X/WEEK
     Route: 058
     Dates: start: 20030601, end: 20110513

REACTIONS (7)
  - SARCOIDOSIS [None]
  - COUGH [None]
  - LYMPHADENOPATHY [None]
  - UPPER RESPIRATORY TRACT INFECTION [None]
  - GRANULOMA [None]
  - DYSPNOEA [None]
  - HYPERCALCAEMIA [None]
